FAERS Safety Report 4941409-7 (Version None)
Quarter: 2006Q1

REPORT INFORMATION
  Report Type: 
  Country: None (occurrence: None)
  Receive Date: 20060310
  Receipt Date: 20060302
  Transmission Date: 20060701
  Serious: Yes (Other)
  Sender: FDA-Public Use
  Company Number: CHPA2006US02399

PATIENT
  Age: 55 Year
  Sex: Female
  Weight: 45.3597 kg

DRUGS (1)
  1. EXCEDRIN EXTRA STRENGTH (NCH)(SEE IMAGE) [Suspect]
     Indication: HEADACHE
     Dosage: 1 DF QD ORAL
     Route: 048

REACTIONS (4)
  - ASTHENIA [None]
  - DRUG ABUSER [None]
  - VERTIGO [None]
  - VOMITING [None]
